FAERS Safety Report 9450062 (Version 1)
Quarter: 2013Q3

REPORT INFORMATION
  Report Type: Report from Study
  Country: CA (occurrence: CA)
  Receive Date: 20130809
  Receipt Date: 20130809
  Transmission Date: 20140515
  Serious: Yes (Death, Other)
  Sender: FDA-Public Use
  Company Number: CA-ROCHE-1199589

PATIENT
  Sex: Female
  Weight: 110 kg

DRUGS (10)
  1. ACTEMRA [Suspect]
     Indication: RHEUMATOID ARTHRITIS
     Route: 042
     Dates: start: 20120426
  2. ACTEMRA [Suspect]
     Route: 042
     Dates: start: 20130524, end: 20130718
  3. HYDROCHLOROTHIAZIDE [Concomitant]
  4. ATENOLOL [Concomitant]
  5. AMLODIPINE [Concomitant]
  6. ATORVASTATIN [Concomitant]
  7. WARFARIN [Concomitant]
  8. PERCOCET [Concomitant]
  9. METHOTREXATE [Concomitant]
  10. FOLIC ACID [Concomitant]

REACTIONS (2)
  - Haemorrhagic stroke [Fatal]
  - Drug ineffective [Unknown]
